FAERS Safety Report 5928389-2 (Version None)
Quarter: 2008Q4

REPORT INFORMATION
  Report Type: 
  Country: None (occurrence: None)
  Receive Date: 20081023
  Receipt Date: 20081014
  Transmission Date: 20090506
  Serious: Yes (Hospitalization)
  Sender: FDA-Public Use
  Company Number: US-PFIZER INC-2008081967

PATIENT
  Sex: Female
  Weight: 89.8 kg

DRUGS (17)
  1. SU-011,248 [Suspect]
     Indication: BREAST CANCER
     Route: 048
     Dates: start: 20071128
  2. PACLITAXEL [Suspect]
     Indication: BREAST CANCER
     Route: 042
     Dates: start: 20071128, end: 20080722
  3. ACTOS [Concomitant]
     Indication: DIABETES MELLITUS
     Dates: start: 20060901
  4. ASTELIN [Concomitant]
     Indication: SEASONAL ALLERGY
     Dates: start: 20050502
  5. BYETTA [Concomitant]
     Indication: DIABETES MELLITUS
     Dates: start: 20070301
  6. MONTELUKAST SODIUM [Concomitant]
     Indication: HYPERSENSITIVITY
     Dates: start: 20070907
  7. VITAMIN B6 [Concomitant]
     Indication: CARPAL TUNNEL SYNDROME
     Dates: start: 20070201
  8. METOPROLOL TARTRATE [Concomitant]
     Indication: HYPERTENSION
     Dates: start: 20060801
  9. METFORMIN HYDROCHLORIDE [Concomitant]
     Indication: DIABETES MELLITUS
     Dates: start: 20050101
  10. PRILOSEC [Concomitant]
     Indication: GASTRITIS
     Dates: start: 20071105
  11. WARFARIN SODIUM [Concomitant]
     Indication: PROPHYLAXIS
     Dates: start: 20071128
  12. CALCIUM WITH VITAMIN D [Concomitant]
     Indication: SUPPLEMENTATION THERAPY
     Dates: start: 20071101
  13. ALBUTEROL [Concomitant]
     Indication: DYSPNOEA
     Dates: start: 20080418
  14. ZOFRAN [Concomitant]
     Indication: NAUSEA
     Dates: start: 20080822
  15. ZOFRAN [Concomitant]
     Indication: VOMITING
  16. CARAFATE [Concomitant]
     Indication: NAUSEA
     Dates: start: 20080822
  17. SYNTHROID [Concomitant]
     Indication: HYPOTHYROIDISM
     Dates: start: 20050701

REACTIONS (4)
  - DUODENITIS [None]
  - GASTRIC ULCER [None]
  - GASTRITIS [None]
  - RENAL FAILURE ACUTE [None]
